FAERS Safety Report 24393555 (Version 1)
Quarter: 2024Q4

REPORT INFORMATION
  Report Type: Spontaneous
  Country: GB (occurrence: GB)
  Receive Date: 20241003
  Receipt Date: 20241003
  Transmission Date: 20250114
  Serious: Yes (Death, Other)
  Sender: DAIICHI
  Company Number: GB-DSJP-DSE-2023-154115

PATIENT
  Sex: Female
  Weight: 64.5 kg

DRUGS (3)
  1. ENHERTU [Suspect]
     Active Substance: FAM-TRASTUZUMAB DERUXTECAN-NXKI
     Indication: Non-small cell lung cancer stage IV
     Dosage: UNK UNK, CYCLIC
     Route: 042
  2. ENHERTU [Suspect]
     Active Substance: FAM-TRASTUZUMAB DERUXTECAN-NXKI
     Indication: Lung cancer metastatic
     Dosage: 280 MG, CYCLIC
     Route: 042
     Dates: start: 20240102
  3. ENHERTU [Suspect]
     Active Substance: FAM-TRASTUZUMAB DERUXTECAN-NXKI
     Dosage: UNK UNK, CYCLIC
     Route: 042

REACTIONS (3)
  - Death [Fatal]
  - Metastases to central nervous system [Unknown]
  - Off label use [Not Recovered/Not Resolved]
